FAERS Safety Report 24393419 (Version 2)
Quarter: 2024Q4

REPORT INFORMATION
  Report Type: Spontaneous
  Country: US (occurrence: US)
  Receive Date: 20241003
  Receipt Date: 20241125
  Transmission Date: 20250115
  Serious: No
  Sender: GLAXOSMITHKLINE
  Company Number: US-GSKCCFUS-Case-02109484_AE-116432

PATIENT
  Sex: Male
  Weight: 89.357 kg

DRUGS (1)
  1. VENTOLIN HFA [Suspect]
     Active Substance: ALBUTEROL SULFATE
     Indication: Product use in unapproved indication
     Dosage: UNK

REACTIONS (1)
  - Wrong technique in product usage process [Unknown]
